FAERS Safety Report 6888769-8 (Version None)
Quarter: 2010Q3

REPORT INFORMATION
  Report Type: 
  Country: None (occurrence: None)
  Receive Date: 20100730
  Receipt Date: 20071109
  Transmission Date: 20110219
  Serious: No
  Sender: FDA-Public Use
  Company Number: US-PFIZER INC-2007076093

PATIENT
  Sex: Female
  Weight: 54.5 kg

DRUGS (4)
  1. LIPITOR [Suspect]
     Indication: BLOOD CHOLESTEROL INCREASED
     Route: 048
     Dates: start: 20050309, end: 20070905
  2. LIPITOR [Suspect]
     Indication: HYPERCHOLESTEROLAEMIA
  3. NEXIUM [Concomitant]
  4. LISINOPRIL [Concomitant]

REACTIONS (7)
  - ASTHENIA [None]
  - BLOOD CHOLESTEROL INCREASED [None]
  - BLOOD ELECTROLYTES DECREASED [None]
  - HYPONATRAEMIA [None]
  - LOW DENSITY LIPOPROTEIN INCREASED [None]
  - MUSCLE SPASMS [None]
  - MYALGIA [None]
